FAERS Safety Report 24787102 (Version 1)
Quarter: 2024Q4

REPORT INFORMATION
  Report Type: Report from Study
  Country: US (occurrence: US)
  Receive Date: 20241230
  Receipt Date: 20241230
  Transmission Date: 20250115
  Serious: Yes (Hospitalization, Other)
  Sender: UCB
  Company Number: US-UCBSA-2024067675

PATIENT
  Sex: Female

DRUGS (1)
  1. CERTOLIZUMAB PEGOL [Suspect]
     Active Substance: CERTOLIZUMAB PEGOL
     Indication: Rheumatoid arthritis
     Dosage: INJECT 2 PFS, EV 4 WEEKS

REACTIONS (3)
  - Influenza [Not Recovered/Not Resolved]
  - Multiple fractures [Not Recovered/Not Resolved]
  - Fall [Not Recovered/Not Resolved]
